FAERS Safety Report 4470826-7 (Version None)
Quarter: 2004Q4

REPORT INFORMATION
  Report Type: 
  Country: None (occurrence: None)
  Receive Date: 20041006
  Receipt Date: 20041006
  Transmission Date: 20050328
  Serious: Yes (Death)
  Sender: FDA-Public Use
  Company Number: None

PATIENT
  Age: 19 Year
  Sex: Female
  Weight: 56.6996 kg

DRUGS (2)
  1. PAXIL [Suspect]
     Dosage: TRANSPLACE
  2. WELLBUTRIN [Suspect]

REACTIONS (1)
  - DRUG INEFFECTIVE [None]
